FAERS Safety Report 4539028-X (Version None)
Quarter: 2004Q4

REPORT INFORMATION
  Report Type: 
  Country: None (occurrence: None)
  Receive Date: 20041222
  Receipt Date: 20041217
  Transmission Date: 20050328
  Serious: Yes (Hospitalization, Other)
  Sender: FDA-Public Use
  Company Number: US_0406103675

PATIENT
  Age: 49 Year
  Sex: Female
  Weight: 85 kg

DRUGS (16)
  1. ZYPREXA [Suspect]
     Dosage: 45 MG AT BEDTIME
     Dates: start: 20011120, end: 20040507
  2. ABILITY (ARIPIPRAZOLE) [Concomitant]
  3. WELLBUTRIN SR [Concomitant]
  4. PAXIL [Concomitant]
  5. ANTABUSE [Concomitant]
  6. SPIRONOLACTONE [Concomitant]
  7. LITHIUM CARBONATE [Concomitant]
  8. LISINOPRIL [Concomitant]
  9. ATORVASTATIN [Concomitant]
  10. METFORMIN HCL [Concomitant]
  11. RISPERDAL [Concomitant]
  12. VITAMIN B-12 [Concomitant]
  13. ZANTAC [Concomitant]
  14. BACTRIM [Concomitant]
  15. ERYTHROMYCIN [Concomitant]
  16. VISTARIL [Concomitant]

REACTIONS (45)
  - AMNESIA [None]
  - ANGER [None]
  - ANXIETY [None]
  - APATHY [None]
  - BIPOLAR DISORDER [None]
  - BLOOD GLUCOSE FLUCTUATION [None]
  - BLOOD GLUCOSE INCREASED [None]
  - CONDITION AGGRAVATED [None]
  - CONTUSION [None]
  - DEPRESSION [None]
  - DIABETES MELLITUS NON-INSULIN-DEPENDENT [None]
  - DISTURBANCE IN ATTENTION [None]
  - DIVERTICULITIS [None]
  - DIZZINESS [None]
  - DYSURIA [None]
  - FALL [None]
  - FATIGUE [None]
  - FEAR [None]
  - FLAT AFFECT [None]
  - HALLUCINATION [None]
  - HEADACHE [None]
  - HYPERCHOLESTEROLAEMIA [None]
  - HYPERPHAGIA [None]
  - HYPERSOMNIA [None]
  - HYPOTENSION [None]
  - INJURY [None]
  - INSOMNIA [None]
  - LOSS OF CONSCIOUSNESS [None]
  - MAJOR DEPRESSION [None]
  - MEDICATION ERROR [None]
  - MICTURITION URGENCY [None]
  - MUSCLE CRAMP [None]
  - MUSCLE TWITCHING [None]
  - NIGHTMARE [None]
  - POLYSUBSTANCE ABUSE [None]
  - PRESCRIBED OVERDOSE [None]
  - SELF MUTILATION [None]
  - SELF-MEDICATION [None]
  - SUICIDAL IDEATION [None]
  - SYNCOPE [None]
  - THERMAL BURN [None]
  - THINKING ABNORMAL [None]
  - TREMOR [None]
  - VISUAL DISTURBANCE [None]
  - WEIGHT INCREASED [None]
